FAERS Safety Report 15944863 (Version 1)
Quarter: 2019Q1

REPORT INFORMATION
  Report Type: Spontaneous
  Country: US (occurrence: US)
  Receive Date: 20190211
  Receipt Date: 20190211
  Transmission Date: 20190417
  Serious: No
  Sender: FDA-Public Use
  Company Number: US-PERRIGO-18US002097

PATIENT
  Age: 6 Year
  Sex: Female
  Weight: 16.78 kg

DRUGS (2)
  1. IBUPROFEN. [Suspect]
     Active Substance: IBUPROFEN
     Indication: INFLUENZA
  2. IBUPROFEN. [Suspect]
     Active Substance: IBUPROFEN
     Indication: STREPTOCOCCAL INFECTION
     Dosage: 150 MG, SINGLE
     Route: 048
     Dates: start: 201802, end: 201802

REACTIONS (1)
  - Drug ineffective [Unknown]

NARRATIVE: CASE EVENT DATE: 201802
